FAERS Safety Report 21831291 (Version 9)
Quarter: 2024Q4

REPORT INFORMATION
  Report Type: Spontaneous
  Country: US (occurrence: US)
  Receive Date: 20230106
  Receipt Date: 20241217
  Transmission Date: 20250114
  Serious: Yes (Other)
  Sender: PFIZER
  Company Number: US-PFIZER INC-PV202200069497

PATIENT
  Age: 66 Year
  Sex: Female

DRUGS (2)
  1. IBRANCE [Suspect]
     Active Substance: PALBOCICLIB
     Dosage: 100 MG
  2. IBRANCE [Suspect]
     Active Substance: PALBOCICLIB
     Dosage: 1 TAB DAILY, 7 DAYS ON 7 DAYS OFF
     Route: 048

REACTIONS (5)
  - Pneumonia [Unknown]
  - Platelet count decreased [Unknown]
  - Immune system disorder [Unknown]
  - Off label use [Unknown]
  - Product dose omission issue [Unknown]
